FAERS Safety Report 7978504-4 (Version None)
Quarter: 2011Q4

REPORT INFORMATION
  Report Type: 
  Country: None (occurrence: None)
  Receive Date: 20111214
  Receipt Date: 20111207
  Transmission Date: 20120403
  Serious: Yes (Hospitalization)
  Sender: FDA-Public Use
  Company Number: BE-UCBSA-046213

PATIENT
  Age: 74 Year
  Sex: Male

DRUGS (10)
  1. VIMPAT [Suspect]
     Indication: CONVULSION
     Route: 042
     Dates: start: 20111027, end: 20110101
  2. VALPROATE SODIUM [Concomitant]
     Indication: CONVULSION
     Dosage: 20 MG/KG
     Route: 042
     Dates: start: 20111027, end: 20111027
  3. VIMPAT [Suspect]
     Route: 048
     Dates: start: 20111102, end: 20111109
  4. LEVETIRACETAM [Concomitant]
     Route: 048
     Dates: start: 20110101
  5. DIAZEPAM [Concomitant]
     Indication: EPILEPSY
     Dosage: DOSE PER INTAKE: 10 MG
     Route: 042
     Dates: start: 20111026, end: 20111026
  6. LEVETIRACETAM [Concomitant]
     Route: 048
     Dates: start: 20110101
  7. DIAZEPAM [Concomitant]
     Indication: ELECTROENCEPHALOGRAM ABNORMAL
     Dosage: DOSE PER INTAKE: 10 MG
     Route: 042
     Dates: start: 20111026, end: 20111026
  8. LEVETIRACETAM [Concomitant]
     Indication: ELECTROENCEPHALOGRAM ABNORMAL
     Dosage: 1500 MG
     Route: 042
     Dates: start: 20111026, end: 20110101
  9. LEVETIRACETAM [Concomitant]
     Indication: CONVULSION
     Dosage: 1500 MG
     Route: 042
     Dates: start: 20111026, end: 20110101
  10. VIMPAT [Suspect]
     Route: 048
     Dates: start: 20111110

REACTIONS (2)
  - MYOCLONUS [None]
  - ENCEPHALOPATHY [None]
